FAERS Safety Report 22793902 (Version 2)
Quarter: 2024Q1

REPORT INFORMATION
  Report Type: Report from Study
  Country: IN (occurrence: IN)
  Receive Date: 20230807
  Receipt Date: 20240117
  Transmission Date: 20240409
  Serious: Yes (Hospitalization, Other)
  Sender: FDA-Public Use
  Company Number: IN-BIOGEN-2023BI01212110

PATIENT
  Age: 61 Year
  Sex: Male

DRUGS (1)
  1. TECFIDERA [Suspect]
     Active Substance: DIMETHYL FUMARATE
     Indication: Multiple sclerosis
     Route: 050
     Dates: start: 20210620

REACTIONS (12)
  - Calculus bladder [Unknown]
  - Blood glucose decreased [Unknown]
  - Asthenia [Unknown]
  - Fatigue [Unknown]
  - Hepatomegaly [Unknown]
  - Prostatomegaly [Unknown]
  - Pneumonia [Unknown]
  - Renal disorder [Unknown]
  - Hypercalcaemia [Unknown]
  - Gastrointestinal disorder [Unknown]
  - Feeling hot [Unknown]
  - Dyspepsia [Unknown]

NARRATIVE: CASE EVENT DATE: 20230701
